FAERS Safety Report 18405134 (Version 1)
Quarter: 2020Q4

REPORT INFORMATION
  Report Type: Spontaneous
  Country: US (occurrence: US)
  Receive Date: 20201020
  Receipt Date: 20201020
  Transmission Date: 20210114
  Serious: No
  Sender: FDA-Public Use
  Company Number: US-PFIZER INC-2020403228

PATIENT
  Age: 38 Year
  Sex: Male

DRUGS (6)
  1. EUCRISA [Suspect]
     Active Substance: CRISABOROLE
     Indication: HYPERSENSITIVITY
  2. EUCRISA [Suspect]
     Active Substance: CRISABOROLE
     Indication: ECZEMA
  3. EUCRISA [Suspect]
     Active Substance: CRISABOROLE
     Indication: PSORIASIS
  4. EUCRISA [Suspect]
     Active Substance: CRISABOROLE
     Indication: DERMATITIS ATOPIC
     Dosage: UNK
  5. EUCRISA [Suspect]
     Active Substance: CRISABOROLE
     Indication: SINUSITIS
  6. EUCRISA [Suspect]
     Active Substance: CRISABOROLE
     Indication: RHINITIS ALLERGIC

REACTIONS (2)
  - Condition aggravated [Not Recovered/Not Resolved]
  - Eczema [Not Recovered/Not Resolved]
